FAERS Safety Report 5599832-6 (Version None)
Quarter: 2008Q1

REPORT INFORMATION
  Report Type: 
  Country: None (occurrence: None)
  Receive Date: 20080123
  Receipt Date: 20080115
  Transmission Date: 20080703
  Serious: Yes (Hospitalization, Other)
  Sender: FDA-Public Use
  Company Number: US-ROCHE-485892

PATIENT
  Age: 16 Year
  Sex: Male
  Weight: 65.8 kg

DRUGS (10)
  1. ACCUTANE [Suspect]
     Indication: ACNE
     Route: 048
     Dates: start: 19990929, end: 20000508
  2. PREDNISONE TAB [Concomitant]
     Indication: ACNE
     Dates: start: 19991001
  3. ERYTHROMYCIN [Concomitant]
     Indication: ACNE
     Route: 048
  4. TRIAMCINOLONE [Concomitant]
     Dosage: ROUTE REPORTED AS INJ. STRENGTH REPORTED AS 3-10 MG/CC.
     Route: 050
     Dates: start: 19991001
  5. ZITHROMAX [Concomitant]
     Indication: ACNE
     Dates: start: 19991007
  6. DOXYCYCLINE [Concomitant]
     Route: 048
     Dates: start: 19991101
  7. BENZAMYCIN [Concomitant]
  8. SUMYCIN [Concomitant]
  9. RETIN-A [Concomitant]
  10. DIFFERIN [Concomitant]

REACTIONS (25)
  - ACNE [None]
  - ANAEMIA [None]
  - ANXIETY [None]
  - APPENDICITIS [None]
  - COLITIS [None]
  - COLITIS ULCERATIVE [None]
  - DEPRESSION [None]
  - DRY SKIN [None]
  - EMOTIONAL DISTRESS [None]
  - EYE SWELLING [None]
  - FATIGUE [None]
  - HAEMORRHAGE [None]
  - HEADACHE [None]
  - INFLAMMATORY BOWEL DISEASE [None]
  - INTERSTITIAL LUNG DISEASE [None]
  - INTESTINAL OBSTRUCTION [None]
  - IRRITABLE BOWEL SYNDROME [None]
  - LIP DRY [None]
  - MYALGIA [None]
  - NASOPHARYNGITIS [None]
  - PHARYNGOLARYNGEAL PAIN [None]
  - PHOTOSENSITIVITY REACTION [None]
  - RASH [None]
  - WEIGHT DECREASED [None]
  - XEROSIS [None]
